FAERS Safety Report 4741914-2 (Version None)
Quarter: 2005Q3

REPORT INFORMATION
  Report Type: 
  Country: None (occurrence: None)
  Receive Date: 20050801
  Receipt Date: 20050321
  Transmission Date: 20060218
  Serious: Yes (Other)
  Sender: FDA-Public Use
  Company Number: 211529

PATIENT
  Sex: Female

DRUGS (2)
  1. HERCEPTIN [Suspect]
     Dosage: INTRAVENOUS
     Route: 042
  2. TAXOTERE [Concomitant]

REACTIONS (1)
  - ATRIAL FIBRILLATION [None]
